FAERS Safety Report 11734510 (Version 1)
Quarter: 2015Q4

REPORT INFORMATION
  Report Type: Report from Study
  Country: US (occurrence: US)
  Receive Date: 20151113
  Receipt Date: 20151113
  Transmission Date: 20160304
  Serious: No
  Sender: FDA-Public Use
  Company Number: US-AMGEN-USASP2015117277

PATIENT
  Age: 42 Year
  Sex: Female

DRUGS (3)
  1. ENBREL [Suspect]
     Active Substance: ETANERCEPT
     Dosage: UNK
     Route: 065
     Dates: start: 2015
  2. HUMIRA [Suspect]
     Active Substance: ADALIMUMAB
     Indication: PRODUCT USED FOR UNKNOWN INDICATION
     Dosage: UNK
     Route: 065
  3. ENBREL [Suspect]
     Active Substance: ETANERCEPT
     Indication: ANKYLOSING SPONDYLITIS
     Dosage: UNK
     Route: 065
     Dates: end: 2015

REACTIONS (11)
  - Injection site bruising [Unknown]
  - Pain in extremity [Unknown]
  - Throat irritation [Unknown]
  - Hypersensitivity [Unknown]
  - Peripheral swelling [Unknown]
  - Injection site swelling [Unknown]
  - Rash [Unknown]
  - Pain [Unknown]
  - Urinary tract infection [Unknown]
  - Injection site erythema [Unknown]
  - Foot deformity [Unknown]

NARRATIVE: CASE EVENT DATE: 2015
